FAERS Safety Report 6954996-4 (Version None)
Quarter: 2010Q3

REPORT INFORMATION
  Report Type: 
  Country: None (occurrence: None)
  Receive Date: 20100830
  Receipt Date: 20100823
  Transmission Date: 20110219
  Serious: Yes (Hospitalization, Other)
  Sender: FDA-Public Use
  Company Number: US-SANOFI-AVENTIS-200516929GDDC

PATIENT
  Age: 56 Year
  Sex: Female
  Weight: 68.49 kg

DRUGS (9)
  1. DOCETAXEL [Suspect]
     Dosage: DOSE AS USED: UNK
     Route: 041
     Dates: start: 20050523, end: 20050523
  2. DOCETAXEL [Suspect]
     Dosage: DOSE AS USED: UNK
     Route: 041
     Dates: start: 20050725, end: 20050725
  3. NEURONTIN [Concomitant]
     Route: 048
     Dates: start: 20050208
  4. COUMADIN [Concomitant]
     Indication: PROPHYLAXIS
     Route: 048
     Dates: start: 20050218
  5. PRINIVIL [Concomitant]
     Indication: HYPERTENSION
     Route: 048
  6. GEMFIBROZIL [Concomitant]
     Route: 048
  7. GLYBURIDE [Concomitant]
     Indication: DIABETES MELLITUS
     Route: 048
     Dates: start: 20050502
  8. HYDROCHLOROTHIAZIDE [Concomitant]
     Indication: HYPERTENSION
     Route: 048
  9. AMLODIPINE BESYLATE [Concomitant]
     Indication: HYPERTENSION
     Route: 048

REACTIONS (8)
  - ASTHENIA [None]
  - CYSTITIS HAEMORRHAGIC [None]
  - DIZZINESS [None]
  - GAIT DISTURBANCE [None]
  - HYPOTENSION [None]
  - RENAL FAILURE ACUTE [None]
  - SEPSIS [None]
  - STOMATITIS [None]
